FAERS Safety Report 12396453 (Version 1)
Quarter: 2016Q2

REPORT INFORMATION
  Report Type: Spontaneous
  Country: US (occurrence: None)
  Receive Date: 20160523
  Receipt Date: 20160523
  Transmission Date: 20160815
  Serious: Yes (Death)
  Sender: FDA-Public Use
  Company Number: None

PATIENT
  Age: 60 Year
  Sex: Male
  Weight: 79.38 kg

DRUGS (3)
  1. COUMADIN [Suspect]
     Active Substance: WARFARIN SODIUM
     Indication: THROMBOSIS PROPHYLAXIS
  2. C-PAP MACHINE [Concomitant]
     Active Substance: DEVICE
  3. OXYGEN. [Concomitant]
     Active Substance: OXYGEN

REACTIONS (6)
  - Vomiting projectile [None]
  - Gastric haemorrhage [None]
  - Speech disorder [None]
  - Resuscitation [None]
  - Haematemesis [None]
  - Asthenia [None]

NARRATIVE: CASE EVENT DATE: 19991122
